FAERS Safety Report 17184247 (Version 1)
Quarter: 2019Q4

REPORT INFORMATION
  Report Type: Spontaneous
  Country: US (occurrence: US)
  Receive Date: 20191220
  Receipt Date: 20191220
  Transmission Date: 20200122
  Serious: No
  Sender: FDA-Public Use
  Company Number: US-RECKITT BENCKISER HEALTHCARE INT LIMITED-RB-87603-2019

PATIENT
  Age: 7 Year
  Sex: Female
  Weight: 23.58 kg

DRUGS (1)
  1. DELSYM [Suspect]
     Active Substance: DEXTROMETHORPHAN
     Indication: PRODUCT USED FOR UNKNOWN INDICATION
     Dosage: PATIENT WAS GIVEN 5 MILLILITRE OF THE PRODUCT 5 HOURS PRIOR TO THE REPORTING AND AGAIN GIVEN 5 MILLI
     Route: 048
     Dates: start: 20190702

REACTIONS (1)
  - Inappropriate schedule of product administration [Unknown]

NARRATIVE: CASE EVENT DATE: 20190702
